FAERS Safety Report 5073631-6 (Version None)
Quarter: 2006Q3

REPORT INFORMATION
  Report Type: 
  Country: None (occurrence: None)
  Receive Date: 20060717
  Receipt Date: 20060118
  Transmission Date: 20061208
  Serious: No
  Sender: FDA-Public Use
  Company Number: 2006000159

PATIENT
  Age: 67 Year
  Sex: Female
  Weight: 58.0604 kg

DRUGS (1)
  1. TARCEVA [Suspect]
     Indication: NEOPLASM MALIGNANT
     Dosage: SEE IMAGE
     Route: 048
     Dates: end: 20060129

REACTIONS (2)
  - JOINT SWELLING [None]
  - RASH [None]
